FAERS Safety Report 10041212 (Version 3)
Quarter: 2014Q2

REPORT INFORMATION
  Report Type: Spontaneous
  Country: JP (occurrence: JP)
  Receive Date: 20140327
  Receipt Date: 20140428
  Transmission Date: 20141212
  Serious: Yes (Other)
  Sender: FDA-Public Use
  Company Number: JP-SA-2014SA035428

PATIENT
  Age: 51 Year
  Sex: Male

DRUGS (3)
  1. LASIX [Suspect]
     Indication: ASCITES
     Route: 048
     Dates: end: 20140319
  2. GLUCOBAY [Concomitant]
     Indication: DIABETES MELLITUS
     Route: 048
  3. JANUVIA [Concomitant]
     Indication: DIABETES MELLITUS
     Route: 048

REACTIONS (2)
  - Electrocardiogram QT prolonged [Recovered/Resolved]
  - Hypomagnesaemia [Unknown]
